FAERS Safety Report 6244914-9 (Version None)
Quarter: 2009Q2

REPORT INFORMATION
  Report Type: 
  Country: None (occurrence: None)
  Receive Date: 20090625
  Receipt Date: 20090615
  Transmission Date: 20091009
  Serious: Yes (Hospitalization, Disabling, Other)
  Sender: FDA-Public Use
  Company Number: PHEH2009US05000

PATIENT
  Sex: Female

DRUGS (1)
  1. RECLAST [Suspect]
     Indication: OSTEOPOROSIS
     Dosage: 5 MG, UNK
     Route: 042
     Dates: start: 20090502

REACTIONS (15)
  - ABASIA [None]
  - ANGIOGRAM ABNORMAL [None]
  - AORTIC CALCIFICATION [None]
  - BRONCHIECTASIS [None]
  - DILATATION VENTRICULAR [None]
  - ECHOCARDIOGRAM ABNORMAL [None]
  - FIBRIN D DIMER INCREASED [None]
  - HIATUS HERNIA [None]
  - MITRAL VALVE INCOMPETENCE [None]
  - MYALGIA [None]
  - PAIN IN EXTREMITY [None]
  - PULMONARY HYPERTENSION [None]
  - TRICUSPID VALVE INCOMPETENCE [None]
  - VASODILATATION [None]
  - WHEELCHAIR USER [None]
